FAERS Safety Report 8915253 (Version 2)
Quarter: 2012Q4

REPORT INFORMATION
  Report Type: 
  Country: US (occurrence: US)
  Receive Date: 20121119
  Receipt Date: 20121212
  Transmission Date: 20130627
  Serious: Yes (Other)
  Sender: FDA-Public Use
  Company Number: US-PFIZER INC-2012288447

PATIENT
  Age: 68 Year
  Sex: Male
  Weight: 86.17 kg

DRUGS (3)
  1. LYRICA [Suspect]
     Indication: NERVE DAMAGE
     Dosage: 75 mg, 3x/day
     Dates: start: 201202
  2. LYRICA [Suspect]
     Dosage: 75 mg, 4x/day
  3. CELEBREX [Concomitant]
     Indication: OSTEOARTHRITIS
     Dosage: 200 mg, daily

REACTIONS (2)
  - Eye disorder [Unknown]
  - Nervous system disorder [Unknown]
